FAERS Safety Report 4447736-4 (Version None)
Quarter: 2004Q3

REPORT INFORMATION
  Report Type: 
  Country: None (occurrence: None)
  Receive Date: 20040802
  Receipt Date: 20040701
  Transmission Date: 20050211
  Serious: No
  Sender: FDA-Public Use
  Company Number: 2004-118056-NL

PATIENT
  Age: 37 Year
  Sex: Female
  Weight: 66.2 kg

DRUGS (6)
  1. NUVARING [Suspect]
     Indication: CONTRACEPTION
     Dosage: DF DAILY VAGINAL
     Route: 067
     Dates: start: 20040527
  2. NUVARING [Suspect]
     Indication: MENSTRUAL DISORDER
     Dosage: DF DAILY VAGINAL
     Route: 067
     Dates: start: 20040527
  3. MULTI-VITAMINS [Concomitant]
  4. ALLEGRA [Concomitant]
  5. PATANOL [Concomitant]
  6. FLONASE [Concomitant]

REACTIONS (3)
  - ABDOMINAL PAIN [None]
  - METRORRHAGIA [None]
  - VAGINAL CONTRACEPTIVE DEVICE EXPELLED [None]
